FAERS Safety Report 7053061-8 (Version None)
Quarter: 2010Q4

REPORT INFORMATION
  Report Type: 
  Country: None (occurrence: None)
  Receive Date: 20101020
  Receipt Date: 20101008
  Transmission Date: 20110411
  Serious: Yes (Other)
  Sender: FDA-Public Use
  Company Number: US-JNJFOC-20100707913

PATIENT
  Sex: Female

DRUGS (30)
  1. FENTANYL [Suspect]
     Indication: PAIN
     Route: 062
  2. DURAGESIC-100 [Suspect]
     Indication: CARPAL TUNNEL SYNDROME
     Route: 062
  3. DURAGESIC-100 [Suspect]
     Route: 062
  4. DURAGESIC-100 [Suspect]
     Route: 062
  5. DURAGESIC-100 [Suspect]
     Route: 062
  6. DURAGESIC-100 [Suspect]
     Dosage: 50UG/HR+100UG/HR
     Route: 062
  7. DURAGESIC-100 [Suspect]
     Indication: PAIN
     Route: 062
  8. DURAGESIC-100 [Suspect]
     Route: 062
  9. DURAGESIC-100 [Suspect]
     Route: 062
  10. DURAGESIC-100 [Suspect]
     Dosage: 50UG/HR+100UG/HR
     Route: 062
  11. DURAGESIC-100 [Suspect]
     Route: 062
  12. FENTANYL CITRATE [Suspect]
     Indication: PAIN
     Route: 062
  13. FENTANYL CITRATE [Suspect]
     Route: 062
  14. FENTANYL CITRATE [Suspect]
     Route: 062
  15. NEXIUM [Concomitant]
     Indication: GASTROOESOPHAGEAL REFLUX DISEASE
     Route: 048
  16. NEURONTIN [Concomitant]
     Indication: ARTHRALGIA
     Route: 048
  17. TEMAZEPAM [Concomitant]
     Dosage: AT BEDTIME
     Route: 065
  18. TEMAZEPAM [Concomitant]
     Route: 065
  19. TEMAZEPAM [Concomitant]
     Route: 065
  20. TEMAZEPAM [Concomitant]
     Route: 065
  21. TEMAZEPAM [Concomitant]
     Route: 065
  22. TEMAZEPAM [Concomitant]
     Route: 065
  23. TEMAZEPAM [Concomitant]
     Route: 065
  24. DIAZEPAM [Concomitant]
     Dosage: 28 DAYS
     Route: 065
  25. DIAZEPAM [Concomitant]
     Dosage: 28 DAYS
     Route: 065
  26. DIAZEPAM [Concomitant]
     Dosage: 28 DAYS
     Route: 065
  27. DIAZEPAM [Concomitant]
     Dosage: 28 DAYS
     Route: 065
  28. DIAZEPAM [Concomitant]
     Dosage: 28 DAYS
     Route: 065
  29. DIAZEPAM [Concomitant]
     Dosage: 28 DAYS
     Route: 065
  30. DIAZEPAM [Concomitant]
     Dosage: 28 DAYS
     Route: 065

REACTIONS (8)
  - BACK PAIN [None]
  - DRUG INEFFECTIVE [None]
  - HYPERSENSITIVITY [None]
  - KYPHOSCOLIOSIS [None]
  - MALAISE [None]
  - MYALGIA [None]
  - OSTEOARTHRITIS [None]
  - PAIN [None]
